FAERS Safety Report 6213820-8 (Version None)
Quarter: 2009Q2

REPORT INFORMATION
  Report Type: 
  Country: None (occurrence: None)
  Receive Date: 20090602
  Receipt Date: 20090528
  Transmission Date: 20091009
  Serious: Yes (Other)
  Sender: FDA-Public Use
  Company Number: CERZ-1000657

PATIENT
  Age: 66 Year
  Sex: Female
  Weight: 84 kg

DRUGS (1)
  1. CEREZYME [Suspect]
     Indication: GAUCHER'S DISEASE
     Dosage: 3200 U, Q2W, INTRAVENOUS
     Route: 042
     Dates: start: 19940201

REACTIONS (10)
  - ANXIETY [None]
  - CONTUSION [None]
  - COUGH [None]
  - FALL [None]
  - LIMB CRUSHING INJURY [None]
  - NASAL CONGESTION [None]
  - PARKINSON'S DISEASE [None]
  - RASH [None]
  - TOOTH FRACTURE [None]
  - TRANSIENT ISCHAEMIC ATTACK [None]
